FAERS Safety Report 7592199 (Version 2)
Quarter: 2013Q4

REPORT INFORMATION
  Report Type: Spontaneous
  Country: US (occurrence: US)
  Receive Date: 20100917
  Receipt Date: 20131219
  Transmission Date: 20140711
  Serious: Yes (Other)
  Sender: FDA-Public Use
  Company Number: US-AMGEN-KDL422559

PATIENT
  Age: 79 Year
  Sex: Male
  Weight: 67.6 kg

DRUGS (11)
  1. PROCRIT [Suspect]
     Indication: RENAL FAILURE CHRONIC
     Dosage: 10000 IU, QWK
     Route: 058
     Dates: start: 200901
  2. PROCRIT [Suspect]
     Indication: THALASSAEMIA BETA
     Dosage: 10000 IU, QWK
     Route: 058
     Dates: start: 200901
  3. PROCRIT [Suspect]
     Dosage: 10000 IU, QWK
     Route: 058
     Dates: start: 200901
  4. PROCRIT [Suspect]
     Dosage: 20000 UNIT/ML
     Route: 065
     Dates: start: 200912
  5. MULTIVITAMINS [Concomitant]
     Dosage: UNK UNK, QD
  6. DOXAZOSIN MESILATE [Concomitant]
     Dosage: 4 MG, BID
  7. AMLODIPINE BESILATE [Concomitant]
     Dosage: 5 MG, QD
  8. CARVEDILOL [Concomitant]
     Dosage: 25 MG, BID
  9. UNSPECIFIED THYROID MEDICATION [Concomitant]
     Dosage: .137 MG, QD
  10. ACETYLSALICYLIC ACID [Concomitant]
     Dosage: 81 MG, BID
  11. IRON [Concomitant]

REACTIONS (2)
  - Haematocrit decreased [Recovered/Resolved]
  - Drug ineffective [Recovered/Resolved]
